FAERS Safety Report 6233037-0 (Version None)
Quarter: 2009Q2

REPORT INFORMATION
  Report Type: 
  Country: None (occurrence: None)
  Receive Date: 20090617
  Receipt Date: 20090609
  Transmission Date: 20091009
  Serious: Yes (Death, Hospitalization)
  Sender: FDA-Public Use
  Company Number: B0579279A

PATIENT
  Age: 76 Year
  Sex: Female

DRUGS (2)
  1. DIGOXIN [Suspect]
     Route: 065
  2. FOSINOPRIL SODIUM [Concomitant]
     Route: 065

REACTIONS (25)
  - ABDOMINAL PAIN [None]
  - ABDOMINAL TENDERNESS [None]
  - AORTIC VALVE INCOMPETENCE [None]
  - BUNDLE BRANCH BLOCK LEFT [None]
  - CARDIOTHORACIC RATIO INCREASED [None]
  - ELECTROCARDIOGRAM ST SEGMENT DEPRESSION [None]
  - FLATULENCE [None]
  - GASTROINTESTINAL DISORDER [None]
  - GASTROINTESTINAL SOUNDS ABNORMAL [None]
  - GENERALISED OEDEMA [None]
  - HAEMATOCHEZIA [None]
  - HAEMORRHAGE [None]
  - HYPERAEMIA [None]
  - HYPOTENSION [None]
  - INTESTINAL ISCHAEMIA [None]
  - LARGE INTESTINAL ULCER [None]
  - LEUKOCYTOSIS [None]
  - MITRAL VALVE INCOMPETENCE [None]
  - NAUSEA [None]
  - OVERDOSE [None]
  - PYREXIA [None]
  - RIGHT VENTRICULAR HYPERTROPHY [None]
  - SEPSIS [None]
  - SHOCK [None]
  - THERAPEUTIC AGENT TOXICITY [None]
